FAERS Safety Report 8625564-3 (Version None)
Quarter: 2012Q3

REPORT INFORMATION
  Report Type: 
  Country: None (occurrence: None)
  Receive Date: 20120827
  Receipt Date: 20120813
  Transmission Date: 20120928
  Serious: No
  Sender: FDA-Public Use
  Company Number: GB-TEVA-354373ISR

PATIENT
  Sex: Female

DRUGS (2)
  1. LETROZOLE [Suspect]
  2. TEVA ALENDRONIC ACID [Interacting]
     Dates: start: 20110801

REACTIONS (9)
  - MYALGIA [None]
  - OSTEOPETROSIS [None]
  - APHASIA [None]
  - PAIN [None]
  - DRUG INTERACTION [None]
  - MIGRAINE [None]
  - MONOPLEGIA [None]
  - COMPRESSION FRACTURE [None]
  - BONE PAIN [None]
